FAERS Safety Report 9365820 (Version 2)
Quarter: 2013Q4

REPORT INFORMATION
  Report Type: Spontaneous
  Country: FR (occurrence: FR)
  Receive Date: 20130625
  Receipt Date: 20131222
  Transmission Date: 20140711
  Serious: Yes (Other)
  Sender: FDA-Public Use
  Company Number: PHHY2013FR063593

PATIENT
  Age: 55 Year
  Sex: Male

DRUGS (11)
  1. LESCOL [Suspect]
     Dosage: 40 MG, DAILY
     Route: 048
     Dates: start: 2011
  2. LESCOL [Suspect]
     Dosage: 80 MG, DAILY
     Route: 048
  3. LESCOL [Suspect]
     Dosage: 40 MG, QD
     Route: 048
  4. REYATAZ [Suspect]
     Dosage: UNK UKN, UNK
     Route: 048
     Dates: start: 201106
  5. REYATAZ [Suspect]
     Dosage: 400 MG, BID
     Route: 048
     Dates: start: 20110830, end: 201305
  6. REYATAZ [Suspect]
     Dosage: UNK UKN, UNK
     Route: 048
     Dates: start: 201311
  7. KIVEXA [Suspect]
     Dosage: 1 DF, QD
     Route: 048
     Dates: start: 201106
  8. KIVEXA [Suspect]
     Dosage: UNK UKN, UNK
     Route: 048
     Dates: start: 201311
  9. DUOPLAVIN [Suspect]
     Dosage: 1 DF, ONCE DAILY
     Route: 048
     Dates: start: 2011
  10. IKOREL [Suspect]
     Dosage: UNK UKN, UNK
     Route: 048
     Dates: start: 2011
  11. NORVIR [Concomitant]
     Dosage: UNK UKN, UNK
     Dates: start: 201106, end: 20110830

REACTIONS (1)
  - Diabetes mellitus [Not Recovered/Not Resolved]
